FAERS Safety Report 26114482 (Version 1)
Quarter: 2025Q4

REPORT INFORMATION
  Report Type: Other
  Country: EU (occurrence: EU)
  Receive Date: 20251202
  Receipt Date: 20251202
  Transmission Date: 20260118
  Serious: Yes (Hospitalization, Other)
  Sender: AIRGAS
  Company Number: EU-ALSI-2025000308

PATIENT
  Age: 25 Year
  Sex: Male

DRUGS (1)
  1. NITROUS OXIDE [Suspect]
     Active Substance: NITROUS OXIDE
     Indication: Product used for unknown indication

REACTIONS (6)
  - Pulmonary embolism [Unknown]
  - Blood homocysteine increased [Unknown]
  - Vitamin B12 decreased [Unknown]
  - Peripheral sensorimotor neuropathy [Unknown]
  - Gait disturbance [Unknown]
  - Paraesthesia [Unknown]
